FAERS Safety Report 11071173 (Version 1)
Quarter: 2015Q2

REPORT INFORMATION
  Report Type: Report from Study
  Country: US (occurrence: US)
  Receive Date: 20150428
  Receipt Date: 20150428
  Transmission Date: 20150821
  Serious: Yes (Other)
  Sender: FDA-Public Use
  Company Number: US-JNJFOC-20150415382

PATIENT
  Age: 48 Year
  Sex: Male

DRUGS (7)
  1. TYLENOL [Suspect]
     Active Substance: ACETAMINOPHEN
     Indication: PREMEDICATION
     Route: 065
     Dates: start: 20150309
  2. BENADRYL [Suspect]
     Active Substance: DIPHENHYDRAMINE HYDROCHLORIDE
     Indication: PRODUCT USED FOR UNKNOWN INDICATION
     Route: 042
  3. LISINOPRIL. [Concomitant]
     Active Substance: LISINOPRIL
     Indication: BLOOD PRESSURE
     Route: 065
     Dates: start: 2011
  4. TYLENOL [Suspect]
     Active Substance: ACETAMINOPHEN
     Route: 065
  5. CLARITIN [Concomitant]
     Active Substance: LORATADINE
     Indication: PREMEDICATION
     Route: 065
  6. REMICADE [Suspect]
     Active Substance: INFLIXIMAB
     Indication: PSORIASIS
     Dosage: DOSING FREQUENCY: 0,2,6 WEEKS
     Route: 042
     Dates: start: 201501, end: 201503
  7. COSENTYX [Concomitant]
     Active Substance: SECUKINUMAB
     Indication: PSORIASIS
     Dosage: STARTER DOSE: 2 SHOTS A WEEK
     Route: 065
     Dates: start: 201504

REACTIONS (14)
  - Chest discomfort [Recovered/Resolved]
  - Hypoaesthesia [Recovered/Resolved]
  - Skin discolouration [Recovered/Resolved]
  - Hypertension [Unknown]
  - Fatigue [Recovered/Resolved]
  - Heart rate irregular [Not Recovered/Not Resolved]
  - Tremor [Recovered/Resolved]
  - Infusion related reaction [Recovered/Resolved]
  - Nausea [Recovered/Resolved]
  - Nasopharyngitis [Recovered/Resolved]
  - Heart rate increased [Unknown]
  - Cough [Recovered/Resolved]
  - Oxygen saturation decreased [Unknown]
  - Paraesthesia [Recovered/Resolved]

NARRATIVE: CASE EVENT DATE: 20150309
